FAERS Safety Report 14687774 (Version 4)
Quarter: 2019Q2

REPORT INFORMATION
  Report Type: Report from Study
  Country: US (occurrence: US)
  Receive Date: 20180328
  Receipt Date: 20190417
  Transmission Date: 20190711
  Serious: No
  Sender: FDA-Public Use
  Company Number: PHEH2018US011696

PATIENT
  Sex: Female

DRUGS (2)
  1. ILARIS [Suspect]
     Active Substance: CANAKINUMAB
     Dosage: 200 MG, EVERY 21 DAYS
     Route: 058
  2. ILARIS [Suspect]
     Active Substance: CANAKINUMAB
     Indication: CRYOPYRIN ASSOCIATED PERIODIC SYNDROME
     Dosage: 200 MG, EVERY 28 DAYS
     Route: 058

REACTIONS (8)
  - Plantar fasciitis [Unknown]
  - Urinary tract infection [Recovered/Resolved]
  - Neck pain [Unknown]
  - Lethargy [Unknown]
  - Chills [Unknown]
  - Inappropriate schedule of product administration [Unknown]
  - Headache [Unknown]
  - Pain [Recovered/Resolved]
